FAERS Safety Report 24123129 (Version 1)
Quarter: 2024Q3

REPORT INFORMATION
  Report Type: Spontaneous
  Country: US (occurrence: US)
  Receive Date: 20240723
  Receipt Date: 20240723
  Transmission Date: 20241017
  Serious: No
  Sender: OTSUKA
  Company Number: US-OTSUKA-2023_019437

PATIENT
  Age: 54 Year
  Sex: Male

DRUGS (2)
  1. REXULTI [Suspect]
     Active Substance: BREXPIPRAZOLE
     Indication: Bipolar II disorder
     Dosage: 2 MG, QD
     Route: 065
     Dates: start: 202212
  2. REXULTI [Suspect]
     Active Substance: BREXPIPRAZOLE
     Dosage: 1.5 DF, QD (DOSE TO 1.5 TABLETS OF 2 MG DAILY)
     Route: 065

REACTIONS (1)
  - Off label use [Unknown]
